FAERS Safety Report 14100954 (Version 1)
Quarter: 2017Q4

REPORT INFORMATION
  Report Type: Spontaneous
  Country: US (occurrence: None)
  Receive Date: 20171017
  Receipt Date: 20171017
  Transmission Date: 20180321
  Serious: Yes (Disabling)
  Sender: FDA-Public Use
  Company Number: None

PATIENT
  Age: 84 Year
  Sex: Female
  Weight: 58.97 kg

DRUGS (4)
  1. AZITHROMYCIN ANHYDROUS. [Suspect]
     Active Substance: AZITHROMYCIN ANHYDROUS
     Indication: MEDICAL DEVICE REMOVAL
     Dosage: 2 - 1ST DAY?1- AFTER THAT
     Route: 048
     Dates: start: 20170914, end: 20170915
  2. BABY ASPIRIN [Concomitant]
     Active Substance: ASPIRIN
  3. 1 A DAY VITAMIN [Concomitant]
     Active Substance: VITAMINS
  4. VITAMIN E [Concomitant]
     Active Substance: .ALPHA.-TOCOPHEROL

REACTIONS (2)
  - Muscle spasms [None]
  - Abdominal pain lower [None]

NARRATIVE: CASE EVENT DATE: 20170916
